FAERS Safety Report 25079376 (Version 4)
Quarter: 2025Q2

REPORT INFORMATION
  Report Type: Spontaneous
  Country: CA (occurrence: CA)
  Receive Date: 20250314
  Receipt Date: 20250513
  Transmission Date: 20250716
  Serious: Yes (Death, Other)
  Sender: PFIZER
  Company Number: CA-PFIZER INC-202500053877

PATIENT
  Age: 83 Year
  Sex: Male

DRUGS (3)
  1. VYNDAMAX [Suspect]
     Active Substance: TAFAMIDIS
     Indication: Cardiac amyloidosis
     Dosage: 61 MG, 1X/DAY
     Route: 048
     Dates: start: 2024
  2. FUROSEMIDE [Concomitant]
     Active Substance: FUROSEMIDE
  3. JARDIANCE [Concomitant]
     Active Substance: EMPAGLIFLOZIN

REACTIONS (11)
  - Death [Fatal]
  - Aortic arteriosclerosis [Unknown]
  - Mitral valve calcification [Unknown]
  - Atrial enlargement [Unknown]
  - Left ventricular hypertrophy [Unknown]
  - Joint swelling [Unknown]
  - Contusion [Unknown]
  - Oedema peripheral [Unknown]
  - Heart rate increased [Unknown]
  - Hypotension [Unknown]
  - Weight decreased [Unknown]

NARRATIVE: CASE EVENT DATE: 20250504
